FAERS Safety Report 6539312-4 (Version None)
Quarter: 2010Q1

REPORT INFORMATION
  Report Type: 
  Country: None (occurrence: None)
  Receive Date: 20100115
  Receipt Date: 20100112
  Transmission Date: 20100710
  Serious: Yes (Hospitalization, Other)
  Sender: FDA-Public Use
  Company Number: FR-JNJFOC-20100103861

PATIENT
  Age: 84 Year
  Sex: Female

DRUGS (5)
  1. OFLOCET [Suspect]
     Indication: LUNG DISORDER
     Route: 065
  2. ROCEPHIN [Suspect]
     Indication: LUNG DISORDER
     Route: 065
  3. TAVANIC [Concomitant]
     Indication: LUNG DISORDER
     Route: 048
  4. TAVANIC [Concomitant]
     Route: 048
  5. CORTANCYL [Concomitant]
     Route: 065

REACTIONS (4)
  - AGRANULOCYTOSIS [None]
  - CARDIAC FAILURE [None]
  - RASH [None]
  - RENAL FAILURE ACUTE [None]
